FAERS Safety Report 7963136-4 (Version None)
Quarter: 2011Q4

REPORT INFORMATION
  Report Type: 
  Country: None (occurrence: None)
  Receive Date: 20111207
  Receipt Date: 20111122
  Transmission Date: 20120403
  Serious: Yes (Hospitalization)
  Sender: FDA-Public Use
  Company Number: GB-WATSON-2011-20391

PATIENT
  Age: 17 Year
  Sex: Female

DRUGS (5)
  1. AMOXYCILLIN                        /00249601/ [Concomitant]
     Indication: PRODUCT USED FOR UNKNOWN INDICATION
  2. ALBUTEROL SULFATE AUTOHALER [Concomitant]
     Indication: PRODUCT USED FOR UNKNOWN INDICATION
  3. SYMBICORT [Concomitant]
     Indication: PRODUCT USED FOR UNKNOWN INDICATION
  4. IPRATROPIUM (UNKNOWN) [Suspect]
     Indication: ASTHMA
     Dosage: 500 UG, UNK
     Dates: start: 20111112, end: 20111113
  5. PREDNISOLONE [Concomitant]
     Indication: PRODUCT USED FOR UNKNOWN INDICATION
     Dosage: UNK

REACTIONS (2)
  - OEDEMA MOUTH [None]
  - URTICARIA [None]
